FAERS Safety Report 9773754 (Version 3)
Quarter: 2014Q1

REPORT INFORMATION
  Report Type: Spontaneous
  Country: US (occurrence: US)
  Receive Date: 20131219
  Receipt Date: 20140217
  Transmission Date: 20141002
  Serious: Yes (Hospitalization)
  Sender: FDA-Public Use
  Company Number: US-ABBVIE-13P-163-1181357-00

PATIENT
  Age: 39 Year
  Sex: Male
  Weight: 104.42 kg

DRUGS (3)
  1. CREON [Suspect]
     Indication: PANCREATITIS
     Route: 048
     Dates: start: 2011, end: 201306
  2. CREON [Suspect]
     Route: 048
     Dates: start: 20131121, end: 201312
  3. UNKNOWN MEDICATION [Concomitant]
     Indication: BLOOD TRIGLYCERIDES INCREASED

REACTIONS (3)
  - Diabetes mellitus [Not Recovered/Not Resolved]
  - Pain [Unknown]
  - Pancreatitis [Recovering/Resolving]
